FAERS Safety Report 9314401 (Version 2)
Quarter: 2013Q2

REPORT INFORMATION
  Report Type: Spontaneous
  Country: HU (occurrence: HU)
  Receive Date: 20130529
  Receipt Date: 20130603
  Transmission Date: 20140414
  Serious: Yes (Life-Threatening, Other)
  Sender: FDA-Public Use
  Company Number: HU-ASTRAZENECA-2013SE36130

PATIENT
  Sex: Female

DRUGS (4)
  1. SEROQUEL XR [Suspect]
     Indication: SCHIZOPHRENIA
     Route: 048
     Dates: start: 20130513
  2. SEROQUEL XR [Suspect]
     Indication: SCHIZOPHRENIA
     Route: 048
     Dates: end: 20130520
  3. CONVULEX [Concomitant]
     Indication: SCHIZOPHRENIA
  4. RISPERIDONE [Concomitant]

REACTIONS (2)
  - Viral infection [Unknown]
  - Thrombocytopenia [Recovered/Resolved]
